FAERS Safety Report 14402292 (Version 1)
Quarter: 2018Q1

REPORT INFORMATION
  Report Type: Report from Study
  Country: JP (occurrence: JP)
  Receive Date: 20180117
  Receipt Date: 20180117
  Transmission Date: 20180509
  Serious: Yes (Death, Other)
  Sender: FDA-Public Use
  Company Number: JP-MYLANLABS-2018M1003648

PATIENT
  Age: 57 Year
  Sex: Male

DRUGS (1)
  1. IMIPRAMINE [Suspect]
     Active Substance: IMIPRAMINE
     Indication: BIPOLAR I DISORDER
     Dosage: DRUG TOXICITY: 0.7MICROG/ML
     Route: 065

REACTIONS (2)
  - Drowning [Fatal]
  - Toxicity to various agents [Fatal]
